FAERS Safety Report 8251285-5 (Version None)
Quarter: 2012Q1

REPORT INFORMATION
  Report Type: 
  Country: None (occurrence: None)
  Receive Date: 20120328
  Receipt Date: 20120319
  Transmission Date: 20120608
  Serious: Yes (Other)
  Sender: FDA-Public Use
  Company Number: US-1190417

PATIENT
  Age: 79 Year
  Sex: Female
  Weight: 63.05 kg

DRUGS (4)
  1. BSS [Suspect]
     Indication: INTRAOCULAR LENS IMPLANT
     Dosage: INTRAOCULAR
     Route: 031
     Dates: start: 20120206, end: 20120206
  2. ZYMAXID [Concomitant]
  3. BETADINE [Suspect]
     Indication: INTRAOCULAR LENS IMPLANT
     Dosage: OPHTHALMIC
     Route: 047
     Dates: start: 20120206, end: 20120206
  4. BSS PLUS [Suspect]
     Indication: INTRAOCULAR LENS IMPLANT
     Dosage: INTRAOCULAR
     Route: 031
     Dates: start: 20120206, end: 20120206

REACTIONS (2)
  - TOXIC ANTERIOR SEGMENT SYNDROME [None]
  - IRITIS [None]
